FAERS Safety Report 22299877 (Version 1)
Quarter: 2023Q2

REPORT INFORMATION
  Report Type: Spontaneous
  Country: HR (occurrence: None)
  Receive Date: 20230509
  Receipt Date: 20230509
  Transmission Date: 20230721
  Serious: Yes (Other)
  Sender: FDA-Public Use
  Company Number: 2023A102600

PATIENT
  Age: 15 Year
  Sex: Female

DRUGS (2)
  1. QUETIAPINE [Suspect]
     Active Substance: QUETIAPINE
     Dosage: QUETIAPINE 25 MG TABLET
     Route: 048
     Dates: start: 20230311, end: 20230311
  2. ESCITALOPRAM [Suspect]
     Active Substance: ESCITALOPRAM OXALATE
     Dosage: 10 MG ESCITALOPRAM TABLET
     Route: 048
     Dates: start: 20230311, end: 20230311

REACTIONS (3)
  - Suicide attempt [Unknown]
  - Intentional overdose [Unknown]
  - Speech disorder [Unknown]

NARRATIVE: CASE EVENT DATE: 20230311
